FAERS Safety Report 16239381 (Version 3)
Quarter: 2019Q2

REPORT INFORMATION
  Report Type: Other
  Country: US (occurrence: US)
  Receive Date: 20190425
  Receipt Date: 20190509
  Transmission Date: 20190711
  Serious: Yes (Hospitalization)
  Sender: FDA-Public Use
  Company Number: US-BIOVITRUM-2019US0743

PATIENT
  Sex: Female

DRUGS (4)
  1. NORETHINDRONE. [Concomitant]
     Active Substance: NORETHINDRONE
  2. KINERET [Suspect]
     Active Substance: ANAKINRA
     Indication: AMYLOIDOSIS
     Route: 058
     Dates: start: 20190320, end: 20190410
  3. PROBIOTIC [Concomitant]
     Active Substance: PROBIOTICS NOS
  4. IMURAN [Concomitant]
     Active Substance: AZATHIOPRINE

REACTIONS (7)
  - Arthralgia [Unknown]
  - Vomiting [Unknown]
  - Hypokinesia [Unknown]
  - Decreased appetite [Unknown]
  - Diarrhoea [Unknown]
  - Pyrexia [Unknown]
  - Off label use [Unknown]
